FAERS Safety Report 8819128 (Version 3)
Quarter: 2014Q1

REPORT INFORMATION
  Report Type: Report from Study
  Country: KR (occurrence: KR)
  Receive Date: 20121001
  Receipt Date: 20140303
  Transmission Date: 20141002
  Serious: Yes (Life-Threatening, Hospitalization)
  Sender: FDA-Public Use
  Company Number: KR-MPIJNJ-2012-05883

PATIENT
  Sex: 0

DRUGS (12)
  1. VELCADE [Suspect]
     Indication: PLASMA CELL MYELOMA
     Dosage: UNK
     Route: 042
     Dates: start: 20120716
  2. VELCADE [Suspect]
     Dosage: 1.3 MG/M2, UNK
     Route: 042
     Dates: start: 20120604, end: 20120611
  3. VELCADE [Suspect]
     Dosage: 1.3 MG/M2, UNK
     Route: 042
     Dates: start: 20120423, end: 20120524
  4. VELCADE [Suspect]
     Dosage: 1.0 MG/M2, UNK
     Route: 042
     Dates: start: 20120716, end: 20120816
  5. MELPHALAN [Suspect]
     Indication: PLASMA CELL MYELOMA
     Dosage: 6 MG/M2, UNK
     Route: 065
     Dates: start: 20120716
  6. MELPHALAN [Suspect]
     Dosage: 6 MG/M2, UNK
     Route: 065
     Dates: start: 20120604, end: 20120607
  7. MELPHALAN [Suspect]
     Dosage: 6 MG/M2, UNK
     Route: 065
     Dates: start: 20120423, end: 20120426
  8. MELPHALAN [Suspect]
     Dosage: 6 MG/M2, UNK
     Route: 065
     Dates: start: 20120716, end: 20120719
  9. PREDNISOLONE [Suspect]
     Indication: PLASMA CELL MYELOMA
     Dosage: UNK
     Route: 065
     Dates: start: 20120716
  10. PREDNISOLONE [Suspect]
     Dosage: 60 MG/M2, UNK
     Route: 065
     Dates: start: 20120604, end: 20120607
  11. PREDNISOLONE [Suspect]
     Dosage: 60 MG/M2, UNK
     Route: 065
     Dates: start: 20120423, end: 20120426
  12. PREDNISOLONE [Suspect]
     Dosage: 60 MG/M2, UNK
     Route: 065
     Dates: start: 20120716, end: 20120719

REACTIONS (8)
  - Pyrexia [Recovered/Resolved]
  - Dizziness [Not Recovered/Not Resolved]
  - Constipation [Recovered/Resolved]
  - Asthenia [Recovered/Resolved]
  - Dizziness [Recovered/Resolved]
  - Insomnia [Not Recovered/Not Resolved]
  - Asthenia [Not Recovered/Not Resolved]
  - Pneumonia [Recovered/Resolved]
